FAERS Safety Report 24388548 (Version 1)
Quarter: 2024Q4

REPORT INFORMATION
  Report Type: Spontaneous
  Country: GB (occurrence: GB)
  Receive Date: 20241002
  Receipt Date: 20241002
  Transmission Date: 20250115
  Serious: Yes (Life-Threatening)
  Sender: PROVEPHARM
  Company Number: GB-Provepharm-2162372

PATIENT

DRUGS (7)
  1. PROVAYBLUE [Suspect]
     Active Substance: METHYLENE BLUE
     Indication: Methaemoglobinaemia
  2. SODIUM NITRITE [Concomitant]
     Active Substance: SODIUM NITRITE
  3. METARAMINOL [Concomitant]
     Active Substance: METARAMINOL
  4. ALFENTANIL [Concomitant]
     Active Substance: ALFENTANIL
  5. PROPOFOL [Concomitant]
     Active Substance: PROPOFOL
  6. ROCURONIUM [Concomitant]
     Active Substance: ROCURONIUM BROMIDE
  7. KETAMINE HYDROCHLORIDE [Concomitant]
     Active Substance: KETAMINE HYDROCHLORIDE

REACTIONS (3)
  - Rebound effect [Recovered/Resolved]
  - Overdose [Unknown]
  - Methaemoglobinaemia [Recovered/Resolved]
